FAERS Safety Report 9819599 (Version 3)
Quarter: 2014Q1

REPORT INFORMATION
  Report Type: Spontaneous
  Country: US (occurrence: US)
  Receive Date: 20140115
  Receipt Date: 20140205
  Transmission Date: 20141002
  Serious: Yes (Disabling, Other)
  Sender: FDA-Public Use
  Company Number: US-CELGENEUS-163-21880-13124945

PATIENT
  Age: 73 Year
  Sex: Male
  Weight: 68.1 kg

DRUGS (10)
  1. REVLIMID [Suspect]
     Indication: PLASMA CELL MYELOMA
     Dosage: 10 MILLIGRAM
     Route: 048
     Dates: start: 20130614
  2. REVLIMID [Suspect]
     Dosage: 5 MILLIGRAM
     Route: 048
     Dates: start: 20131113, end: 20131223
  3. VALTREX [Concomitant]
     Indication: HERPES OPHTHALMIC
     Dosage: 3 GRAM
     Route: 065
  4. CRESTOR [Concomitant]
     Indication: BLOOD CHOLESTEROL
     Route: 065
  5. GABAPENTIN [Concomitant]
     Indication: PRODUCT USED FOR UNKNOWN INDICATION
     Dosage: 900 MILLIGRAM
     Route: 065
  6. ALLOPURINOL [Concomitant]
     Indication: BLOOD URIC ACID
     Dosage: 100 MILLIGRAM
     Route: 065
  7. COSOPT OS [Concomitant]
     Indication: GLAUCOMA
     Dosage: 2 DROPS
     Route: 065
  8. LUMIGAN OS [Concomitant]
     Indication: GLAUCOMA
     Dosage: 2 DROPS
     Route: 065
  9. ASPIRIN [Concomitant]
     Indication: PRODUCT USED FOR UNKNOWN INDICATION
     Dosage: 81 MILLIGRAM
     Route: 065
  10. NEURONTIN [Concomitant]
     Indication: PRODUCT USED FOR UNKNOWN INDICATION
     Dosage: 600 MILLIGRAM
     Route: 065

REACTIONS (5)
  - Herpes ophthalmic [Unknown]
  - Vision blurred [Recovering/Resolving]
  - Platelet disorder [Not Recovered/Not Resolved]
  - Platelet count decreased [Recovering/Resolving]
  - Constipation [Recovered/Resolved]
